FAERS Safety Report 14345181 (Version 1)
Quarter: 2018Q1

REPORT INFORMATION
  Report Type: Report from Study
  Country: US (occurrence: US)
  Receive Date: 20180103
  Receipt Date: 20180103
  Transmission Date: 20180509
  Serious: Yes (Life-Threatening, Hospitalization, Other)
  Sender: FDA-Public Use
  Company Number: US-BRISTOL-MYERS SQUIBB COMPANY-BMS-2017-119869

PATIENT
  Age: 50 Year
  Sex: Male
  Weight: 108.1 kg

DRUGS (1)
  1. NIVOLUMAB [Suspect]
     Active Substance: NIVOLUMAB
     Indication: ANAPLASTIC THYROID CANCER
     Dosage: 3 MG/KG, Q2WK
     Route: 042
     Dates: start: 20171218, end: 20171218

REACTIONS (2)
  - Dyspnoea [Unknown]
  - Hypoxia [Unknown]

NARRATIVE: CASE EVENT DATE: 20171222
